FAERS Safety Report 21330728 (Version 5)
Quarter: 2022Q4

REPORT INFORMATION
  Report Type: Report from Study
  Country: CA (occurrence: CA)
  Receive Date: 20220913
  Receipt Date: 20221124
  Transmission Date: 20230113
  Serious: Yes (Hospitalization, Other)
  Sender: FDA-Public Use
  Company Number: CA-RECORDATI-2022004163

PATIENT

DRUGS (20)
  1. SIGNIFOR LAR [Suspect]
     Active Substance: PASIREOTIDE PAMOATE
     Indication: Acromegaly
     Dosage: 40 MILLIGRAM, QM
     Route: 030
     Dates: start: 20171006
  2. SIGNIFOR LAR [Suspect]
     Active Substance: PASIREOTIDE PAMOATE
     Dosage: 60 MILLIGRAM, QM
     Route: 030
  3. SIGNIFOR LAR [Suspect]
     Active Substance: PASIREOTIDE PAMOATE
     Dosage: 60 MILLIGRAM, EVERY 4 WEEKS
     Route: 030
  4. SOMAVERT [Concomitant]
     Active Substance: PEGVISOMANT
     Indication: Acromegaly
     Dosage: 30 MILLIGRAM, QD (STOPPED 8 TO 9 MONTHS AGO)
  5. CLOPIDOGREL [Concomitant]
     Active Substance: CLOPIDOGREL BISULFATE
     Indication: Product used for unknown indication
  6. NIMESULIDE [Concomitant]
     Active Substance: NIMESULIDE
     Indication: Anticoagulant therapy
     Dosage: ANTOCOAGULATE (POST-OP ONLY)
  7. RANITIDINE [Concomitant]
     Active Substance: RANITIDINE
     Indication: Product used for unknown indication
  8. TRULICITY [Concomitant]
     Active Substance: DULAGLUTIDE
     Indication: Product used for unknown indication
     Dosage: UNK, QW INJECTIONS (STOPPED 6 MONTHS AGO)
     Route: 058
     Dates: end: 2022
  9. METFORMIN [Concomitant]
     Active Substance: METFORMIN HYDROCHLORIDE
     Indication: Product used for unknown indication
  10. APO GLICLAZIDE [Concomitant]
     Indication: Product used for unknown indication
  11. CORTEF [Concomitant]
     Active Substance: HYDROCORTISONE
     Indication: Product used for unknown indication
  12. IRBESARTAN [Concomitant]
     Active Substance: IRBESARTAN
     Indication: Product used for unknown indication
  13. SYNTHROID [Concomitant]
     Active Substance: LEVOTHYROXINE SODIUM
     Indication: Product used for unknown indication
  14. OMEPRAZOLE [Concomitant]
     Active Substance: OMEPRAZOLE
     Indication: Product used for unknown indication
  15. VIT D [VITAMIN D NOS] [Concomitant]
     Indication: Product used for unknown indication
  16. MAGNESIUM [Concomitant]
     Active Substance: MAGNESIUM
     Indication: Product used for unknown indication
  17. ROSUVASTATIN [Concomitant]
     Active Substance: ROSUVASTATIN
     Indication: Product used for unknown indication
     Dosage: 20 MILLIGRAM, QD
  18. ROSUVASTATIN [Concomitant]
     Active Substance: ROSUVASTATIN
     Dosage: 40 MILLIGRAM, QD
  19. ASPIRIN [Concomitant]
     Active Substance: ASPIRIN
     Indication: Product used for unknown indication
     Dosage: EC (ENTERIC COATED)
  20. PREGABALIN [Concomitant]
     Active Substance: PREGABALIN
     Indication: Product used for unknown indication

REACTIONS (18)
  - Peripheral swelling [Unknown]
  - Lethargy [Unknown]
  - Gait disturbance [Unknown]
  - Joint swelling [Unknown]
  - Arthralgia [Unknown]
  - Erythema [Unknown]
  - Skin discharge [Unknown]
  - Bronchitis viral [Unknown]
  - Fall [Unknown]
  - Decreased appetite [Unknown]
  - Nausea [Unknown]
  - Abdominal pain upper [Unknown]
  - Asthma [Unknown]
  - Depressed mood [Unknown]
  - Decreased appetite [Unknown]
  - Asthenia [Unknown]
  - Blood glucose increased [Recovered/Resolved]
  - Fatigue [Recovering/Resolving]

NARRATIVE: CASE EVENT DATE: 20220101
